FAERS Safety Report 17921185 (Version 1)
Quarter: 2020Q2

REPORT INFORMATION
  Report Type: Spontaneous
  Country: FR (occurrence: FR)
  Receive Date: 20200622
  Receipt Date: 20200622
  Transmission Date: 20200714
  Serious: Yes (Hospitalization)
  Sender: FDA-Public Use
  Company Number: FR-ROCHE-2627688

PATIENT
  Age: 26 Year
  Sex: Female
  Weight: 54 kg

DRUGS (5)
  1. EXACYL [Concomitant]
     Active Substance: TRANEXAMIC ACID
     Indication: HAEMORRHAGE
     Route: 042
  2. MABTHERA [Suspect]
     Active Substance: RITUXIMAB
     Indication: IMMUNE THROMBOCYTOPENIA
     Route: 041
     Dates: start: 20200405
  3. ADVAGRAF [Concomitant]
     Active Substance: TACROLIMUS
     Indication: TRANSPLANT
     Route: 048
  4. OPTIMIZETTE [Concomitant]
     Active Substance: DESOGESTREL
     Indication: CONTRACEPTION
     Route: 048
  5. VELBE [Suspect]
     Active Substance: VINBLASTINE SULFATE
     Indication: IMMUNE THROMBOCYTOPENIA
     Route: 042
     Dates: start: 20200427, end: 20200427

REACTIONS (2)
  - Condition aggravated [Recovered/Resolved]
  - Hepatocellular injury [Recovered/Resolved]

NARRATIVE: CASE EVENT DATE: 20200428
